FAERS Safety Report 5179784-3 (Version None)
Quarter: 2006Q4

REPORT INFORMATION
  Report Type: 
  Country: None (occurrence: None)
  Receive Date: 20061211
  Receipt Date: 20061205
  Transmission Date: 20070319
  Serious: Yes (Other)
  Sender: FDA-Public Use
  Company Number: DEWYE653427NOV06

PATIENT
  Sex: Male

DRUGS (2)
  1. RAPAMUNE [Suspect]
     Route: 048
  2. FENOFIBRATE [Concomitant]

REACTIONS (4)
  - BLOOD TRIGLYCERIDES INCREASED [None]
  - CEREBROVASCULAR ACCIDENT [None]
  - VISUAL ACUITY REDUCED [None]
  - WEGENER'S GRANULOMATOSIS [None]
